FAERS Safety Report 9187548 (Version 2)
Quarter: 2013Q2

REPORT INFORMATION
  Report Type: Spontaneous
  Country: FR (occurrence: FR)
  Receive Date: 20130325
  Receipt Date: 20130405
  Transmission Date: 20140414
  Serious: Yes (Life-Threatening, Hospitalization, Other)
  Sender: FDA-Public Use
  Company Number: FR-SHIRE-ALL1-2013-01668

PATIENT
  Age: 63 Year
  Sex: Male
  Weight: 80 kg

DRUGS (24)
  1. XAGRID [Suspect]
     Indication: ESSENTIAL THROMBOCYTHAEMIA
     Dosage: 4.5 MG (NINE CAPSULES DAILY), 1X/DAY:QD
     Dates: start: 201203
  2. XAGRID [Suspect]
     Dosage: 3 MG (SIX CAPSULES), 1X/DAY:QD
     Route: 048
     Dates: start: 2012
  3. XAGRID [Suspect]
     Dosage: 2 MG, (FOUR 0.5 MG CAPSULES DAILY)
     Route: 048
     Dates: start: 201205
  4. XAGRID [Suspect]
     Dosage: 2 MG (FOUR CAPSULES), 1X/DAY:QD
     Route: 048
     Dates: start: 201108
  5. XAGRID [Suspect]
     Dosage: 1 MG (TWO CAPSULES, GRADUALLY INCREASING UP TO NINE CAPSULES), DAILY
     Route: 048
     Dates: start: 201108
  6. COAPROVEL [Concomitant]
     Indication: HYPERTENSION
     Dosage: 300/25 MG, UNKNOWN (IN THE MORNING)
     Route: 065
  7. LOXEN [Concomitant]
     Indication: HYPERTENSION
     Dosage: UNK, UNKNOWN
     Route: 065
  8. OTHER LIPID MODIFYING AGENTS [Concomitant]
     Indication: HYPERCHOLESTEROLAEMIA
     Dosage: UNK, UNKNOWN
     Route: 065
  9. HYDREA [Concomitant]
     Indication: ESSENTIAL THROMBOCYTHAEMIA
     Dosage: 2 DF (CAPSULES), 1X/DAY:QD
     Route: 065
     Dates: start: 201207
  10. HYDREA [Concomitant]
     Dosage: 2 CAPSULES, 1X/DAY:QD
     Route: 065
     Dates: start: 201209
  11. HYDREA [Concomitant]
     Dosage: 500 MG, 2X/DAY:BID (ONE CAPSULE IN THE MORNING AND ONE CAPSULE IN THE EVENING)
     Route: 065
  12. ALPRESS [Concomitant]
     Indication: PRODUCT USED FOR UNKNOWN INDICATION
     Dosage: UNK, UNKNOWN
     Route: 065
  13. TEMERIT [Concomitant]
     Indication: PRODUCT USED FOR UNKNOWN INDICATION
     Dosage: 5 MG, 1X/DAY:QD (IN THE EVENING)
     Route: 065
  14. MOPRAL                             /00661201/ [Concomitant]
     Indication: PRODUCT USED FOR UNKNOWN INDICATION
     Dosage: UNK, UNKNOWN
     Route: 065
  15. KARDEGIC [Concomitant]
     Indication: PRODUCT USED FOR UNKNOWN INDICATION
     Dosage: 75 MG, 1X/DAY:QD
     Route: 065
  16. KARDEGIC [Concomitant]
     Dosage: 160 DF, UNKNOWN
     Route: 065
  17. EFIENT [Concomitant]
     Indication: PRODUCT USED FOR UNKNOWN INDICATION
     Dosage: 10 UNK DF, UNKNOWN
     Route: 065
  18. EFIENT [Concomitant]
     Dosage: 1 DF, 1X/DAY:QD
     Route: 065
  19. NEBIVOLOL [Concomitant]
     Indication: PRODUCT USED FOR UNKNOWN INDICATION
     Dosage: UNK, UNKNOWN
     Route: 065
  20. RAMIPRIL [Concomitant]
     Indication: PRODUCT USED FOR UNKNOWN INDICATION
     Dosage: 2.5 DF, 2X/DAY:BID (MORNINGS AND EVENINGS)
     Route: 065
  21. TAHOR [Concomitant]
     Indication: PRODUCT USED FOR UNKNOWN INDICATION
     Dosage: 80 MG, 1X/DAY:QD (IN THE EVENING)
     Route: 065
  22. LOVENOX [Concomitant]
     Indication: PRODUCT USED FOR UNKNOWN INDICATION
     Dosage: UNK, UNKNOWN
     Route: 065
  23. ELECTROLYTE SOLUTIONS [Concomitant]
     Indication: PRODUCT USED FOR UNKNOWN INDICATION
     Dosage: 1 L/ 24 HRS. 1X/DAY:QD
     Route: 065
  24. LERCAN [Concomitant]
     Indication: PRODUCT USED FOR UNKNOWN INDICATION
     Dosage: 10 MG, 1X/DAY:QD (IN THE MORNING)
     Route: 065

REACTIONS (5)
  - Myocardial infarction [Recovered/Resolved]
  - Hypertension [Unknown]
  - Oesophagitis [Recovered/Resolved]
  - Dyspnoea exertional [Unknown]
  - Chest pain [Unknown]
